FAERS Safety Report 6893439-6 (Version None)
Quarter: 2010Q3

REPORT INFORMATION
  Report Type: 
  Country: None (occurrence: None)
  Receive Date: 20100731
  Receipt Date: 20090915
  Transmission Date: 20110219
  Serious: No
  Sender: FDA-Public Use
  Company Number: US-PFIZER INC-2009271215

PATIENT
  Sex: Female
  Weight: 58.059 kg

DRUGS (2)
  1. LIPITOR [Suspect]
     Indication: BLOOD CHOLESTEROL
     Route: 048
     Dates: start: 19980101, end: 19980101
  2. MULTI-VITAMINS [Concomitant]

REACTIONS (1)
  - FACE OEDEMA [None]
